FAERS Safety Report 14085368 (Version 2)
Quarter: 2018Q1

REPORT INFORMATION
  Report Type: Report from Study
  Country: BR (occurrence: BR)
  Receive Date: 20171013
  Receipt Date: 20180118
  Transmission Date: 20180508
  Serious: Yes (Hospitalization)
  Sender: FDA-Public Use
  Company Number: BR-UCBSA-2017040524

PATIENT
  Age: 36 Year
  Sex: Female
  Weight: 65 kg

DRUGS (5)
  1. FOLIC ACID. [Concomitant]
     Active Substance: FOLIC ACID
     Indication: RHEUMATOID ARTHRITIS
  2. ROSUVASTATIN. [Concomitant]
     Active Substance: ROSUVASTATIN
     Indication: BLOOD CHOLESTEROL INCREASED
     Dosage: 20 MG, ONCE DAILY (QD)
     Route: 048
     Dates: start: 2016
  3. ZETIA [Concomitant]
     Active Substance: EZETIMIBE
     Indication: BLOOD CHOLESTEROL INCREASED
     Dosage: 10 MG, ONCE DAILY (QD)
     Route: 048
     Dates: start: 201705
  4. CERTOLIZUMAB PEGOL [Suspect]
     Active Substance: CERTOLIZUMAB PEGOL
     Indication: RHEUMATOID ARTHRITIS
     Dosage: UNK
     Dates: start: 20161004, end: 2017
  5. METHOTREXATE. [Concomitant]
     Active Substance: METHOTREXATE
     Indication: RHEUMATOID ARTHRITIS
     Dosage: METHOTREXATE 25MG + FOLIC ACID  -  1 TABLET PER WEEK
     Route: 048
     Dates: start: 201704

REACTIONS (2)
  - Rheumatoid arthritis [Recovered/Resolved]
  - Myomectomy [Recovered/Resolved]

NARRATIVE: CASE EVENT DATE: 20170720
